FAERS Safety Report 15200100 (Version 3)
Quarter: 2018Q3

REPORT INFORMATION
  Report Type: Report from Study
  Country: None (occurrence: ES)
  Receive Date: 20180726
  Receipt Date: 20180924
  Transmission Date: 20181010
  Serious: Yes (Other)
  Sender: FDA-Public Use
  Company Number: ES-ABBVIE-18S-144-2429287-00

PATIENT
  Age: 66 Year
  Sex: Female

DRUGS (1)
  1. DUODOPA [Suspect]
     Active Substance: CARBIDOPA\LEVODOPA
     Indication: PARKINSON^S DISEASE
     Route: 050
     Dates: start: 20131128

REACTIONS (3)
  - Postoperative wound infection [Unknown]
  - Embedded device [Not Recovered/Not Resolved]
  - Stoma site induration [Not Recovered/Not Resolved]

NARRATIVE: CASE EVENT DATE: 201807
